FAERS Safety Report 9128983 (Version 1)
Quarter: 2013Q1

REPORT INFORMATION
  Report Type: Spontaneous
  Country: ES (occurrence: ES)
  Receive Date: 20130228
  Receipt Date: 20130228
  Transmission Date: 20140127
  Serious: Yes (Hospitalization)
  Sender: FDA-Public Use
  Company Number: ES-ROCHE-1195505

PATIENT
  Age: 43 Year
  Sex: Female

DRUGS (8)
  1. PEGASYS [Suspect]
     Indication: HEPATITIS C
     Route: 058
     Dates: start: 20100903
  2. RIBAVIRIN [Suspect]
     Indication: HEPATITIS C
     Route: 048
     Dates: start: 20100903
  3. RIBAVIRIN [Suspect]
     Dosage: DIVIDED DOSES (400 MG IN BRAEK FAST, 200 MG IN DINNER)
     Route: 065
  4. KIVEXA [Suspect]
     Indication: HIV INFECTION
     Route: 048
     Dates: end: 20130103
  5. INCIVO [Concomitant]
     Indication: HEPATITIS C
     Route: 048
     Dates: start: 20120601, end: 20120903
  6. EMTRICITABINE [Concomitant]
     Indication: HIV INFECTION
     Route: 048
  7. RIFATER [Concomitant]
     Route: 065
  8. ATRIPLA [Concomitant]
     Route: 065

REACTIONS (4)
  - Pleuritic pain [Recovering/Resolving]
  - Pleural effusion [Recovering/Resolving]
  - Pyrexia [Recovering/Resolving]
  - Dyspnoea [Recovering/Resolving]
